FAERS Safety Report 4743698-0 (Version None)
Quarter: 2005Q3

REPORT INFORMATION
  Report Type: 
  Country: None (occurrence: None)
  Receive Date: 20050809
  Receipt Date: 20050801
  Transmission Date: 20060218
  Serious: Yes (Other)
  Sender: FDA-Public Use
  Company Number: 27091

PATIENT
  Age: 46 Year
  Sex: Female

DRUGS (8)
  1. THEOPHYLLINE [Suspect]
     Indication: ASTHMA
     Dates: start: 19950101
  2. ALENDRONATE SODIUM [Suspect]
     Indication: OSTEOPOROSIS
     Dosage: (70 MG, 1 IN 1 WEEK (S)) ORAL
     Route: 048
     Dates: start: 20020901, end: 20021001
  3. ACTONEL [Suspect]
     Indication: OSTEOPOROSIS
     Dosage: (35 MG, 1 IN 1 WEEK (S))
     Dates: start: 20030101, end: 20031101
  4. FLIXOTIDE [Concomitant]
  5. ATROVENT [Concomitant]
  6. PREDNISOLONE [Concomitant]
  7. SEREVENT [Concomitant]
  8. VENTOLIN [Concomitant]

REACTIONS (7)
  - CONVULSION [None]
  - DRUG INTERACTION [None]
  - DRUG TOXICITY [None]
  - HEADACHE [None]
  - MALAISE [None]
  - OSTEOPOROSIS [None]
  - VOMITING [None]
